FAERS Safety Report 7374509-5 (Version None)
Quarter: 2011Q1

REPORT INFORMATION
  Report Type: 
  Country: None (occurrence: None)
  Receive Date: 20110325
  Receipt Date: 20110321
  Transmission Date: 20110831
  Serious: No
  Sender: FDA-Public Use
  Company Number: US-MYLANLABS-2011S1002257

PATIENT
  Age: 35 Year
  Sex: Female

DRUGS (12)
  1. ADDERALL XR 10 [Concomitant]
  2. FLEXERIL [Concomitant]
  3. MACRODANTIN [Concomitant]
  4. XANAX XR [Concomitant]
  5. OXYCODONE [Concomitant]
     Indication: BREAKTHROUGH PAIN
  6. PROPRANOLOL [Concomitant]
  7. FENTANYL-100 [Suspect]
     Indication: BACK PAIN
     Dosage: CHANGED Q72H
     Route: 062
     Dates: start: 20101101
  8. PROPRANOLOL [Concomitant]
  9. PROZAC [Concomitant]
  10. LUNESTA [Concomitant]
  11. LUNESTA [Concomitant]
  12. TYLENOL COLD DAY/NIGHT [Concomitant]

REACTIONS (4)
  - APPLICATION SITE ECZEMA [None]
  - BACK PAIN [None]
  - APPLICATION SITE ERYTHEMA [None]
  - DRUG INEFFECTIVE [None]
